FAERS Safety Report 11163111 (Version 2)
Quarter: 2015Q2

REPORT INFORMATION
  Report Type: Spontaneous
  Country: US (occurrence: US)
  Receive Date: 20150604
  Receipt Date: 20150614
  Transmission Date: 20150821
  Serious: Yes (Other)
  Sender: FDA-Public Use
  Company Number: US-SA-2015SA040328

PATIENT
  Age: 78 Year
  Sex: Male

DRUGS (2)
  1. SOLOSTAR [Concomitant]
     Active Substance: DEVICE
     Indication: DIABETES MELLITUS
     Dates: start: 201304
  2. LANTUS SOLOSTAR [Suspect]
     Active Substance: INSULIN GLARGINE
     Indication: TYPE 2 DIABETES MELLITUS
     Dosage: 5 OR 6 YEARS DOSE:35 UNIT(S)
     Route: 065

REACTIONS (4)
  - Glaucoma [Unknown]
  - Hypoacusis [Unknown]
  - Blindness unilateral [Unknown]
  - Drug administration error [Unknown]
